FAERS Safety Report 6427309-4 (Version None)
Quarter: 2009Q4

REPORT INFORMATION
  Report Type: 
  Country: None (occurrence: None)
  Receive Date: 20091104
  Receipt Date: 20091025
  Transmission Date: 20100525
  Serious: Yes (Other)
  Sender: FDA-Public Use
  Company Number: B0601425A

PATIENT

DRUGS (1)
  1. VENTOLIN [Suspect]
     Indication: DRUG USE FOR UNKNOWN INDICATION
     Route: 055

REACTIONS (5)
  - COUGH [None]
  - DYSGEUSIA [None]
  - DYSPNOEA [None]
  - SUFFOCATION FEELING [None]
  - THROAT IRRITATION [None]
